FAERS Safety Report 5237453-5 (Version None)
Quarter: 2007Q1

REPORT INFORMATION
  Report Type: 
  Country: None (occurrence: None)
  Receive Date: 20070213
  Receipt Date: 20070207
  Transmission Date: 20070707
  Serious: Yes (Other)
  Sender: FDA-Public Use
  Company Number: IN-BOEHRINGER INGELHEIM GMBH, GERMANY-2007-DE-00783GD

PATIENT
  Age: 32 Year
  Sex: Male

DRUGS (7)
  1. NEVIRAPINE [Suspect]
     Indication: HIV INFECTION
  2. ZIDOVUDINE [Suspect]
     Indication: HIV INFECTION
  3. LAMIVUDINE [Suspect]
     Indication: HIV INFECTION
  4. RIFAMPICIN [Concomitant]
     Indication: BORDERLINE LEPROSY
     Dosage: 600 MG MONTHLY
  5. RIFAMPICIN [Concomitant]
     Indication: LEPROMATOUS LEPROSY
  6. CLOFAZIMINE [Concomitant]
     Indication: BORDERLINE LEPROSY
  7. CLOFAZIMINE [Concomitant]
     Indication: LEPROMATOUS LEPROSY

REACTIONS (2)
  - IMMUNE RECONSTITUTION SYNDROME [None]
  - LEPROMATOUS LEPROSY [None]
